FAERS Safety Report 19875563 (Version 1)
Quarter: 2021Q3

REPORT INFORMATION
  Report Type: Spontaneous
  Country: JP (occurrence: JP)
  Receive Date: 20210924
  Receipt Date: 20210924
  Transmission Date: 20211014
  Serious: Yes (Other)
  Sender: FDA-Public Use
  Company Number: JP-ROCHE-2917924

PATIENT
  Sex: Female

DRUGS (1)
  1. ACTEMRA [Suspect]
     Active Substance: TOCILIZUMAB
     Indication: RHEUMATOID ARTHRITIS
     Dosage: 162 MILLIGRAM
     Route: 058
     Dates: start: 20210716

REACTIONS (4)
  - Aspiration [Unknown]
  - Sensation of foreign body [Not Recovered/Not Resolved]
  - Cutaneous symptom [Unknown]
  - Productive cough [Unknown]

NARRATIVE: CASE EVENT DATE: 202108
